FAERS Safety Report 18058281 (Version 3)
Quarter: 2020Q3

REPORT INFORMATION
  Report Type: Spontaneous
  Country: JP (occurrence: JP)
  Receive Date: 20200723
  Receipt Date: 20200911
  Transmission Date: 20201103
  Serious: Yes (Hospitalization, Other)
  Sender: FDA-Public Use
  Company Number: JP-TEVA-2020-JP-1780184

PATIENT
  Age: 86 Year
  Sex: Female

DRUGS (11)
  1. LANSOPRAZOLE. [Concomitant]
     Active Substance: LANSOPRAZOLE
  2. ZACRAS [Concomitant]
     Active Substance: AMLODIPINE BESYLATE\AZILSARTAN
  3. PARKISTON [Concomitant]
     Active Substance: CARBIDOPA\LEVODOPA
  4. PARACETAMOL [Concomitant]
     Active Substance: ACETAMINOPHEN
  5. BETANIS [Concomitant]
     Active Substance: MIRABEGRON
  6. BELSOMRA [Concomitant]
     Active Substance: SUVOREXANT
  7. AZILECT [Suspect]
     Active Substance: RASAGILINE MESYLATE
     Indication: PARKINSON^S DISEASE
     Dosage: .5 MILLIGRAM DAILY;
     Route: 048
  8. MAGMITT [Concomitant]
     Active Substance: MAGNESIUM OXIDE
  9. PRAVASTATIN SODIUM. [Concomitant]
     Active Substance: PRAVASTATIN SODIUM
  10. REQUIP [Concomitant]
     Active Substance: ROPINIROLE HYDROCHLORIDE
  11. ALFACALCIDOL [Concomitant]
     Active Substance: ALFACALCIDOL

REACTIONS (1)
  - Rib fracture [Recovered/Resolved with Sequelae]

NARRATIVE: CASE EVENT DATE: 20200531
